FAERS Safety Report 8419241-1 (Version None)
Quarter: 2012Q2

REPORT INFORMATION
  Report Type: 
  Country: None (occurrence: None)
  Receive Date: 20120530
  Receipt Date: 20120514
  Transmission Date: 20120825
  Serious: Yes (Other)
  Sender: FDA-Public Use
  Company Number: VAL_00767_2012

PATIENT
  Sex: Female

DRUGS (1)
  1. CALCITRIOL [Suspect]
     Indication: POLYCYSTIC OVARIES
     Dosage: FOR THREE MONTH (0.5 MG)

REACTIONS (3)
  - BLOOD PRESSURE SYSTOLIC DECREASED [None]
  - OFF LABEL USE [None]
  - BLOOD PARATHYROID HORMONE DECREASED [None]
